FAERS Safety Report 9936274 (Version 1)
Quarter: 2014Q1

REPORT INFORMATION
  Report Type: Spontaneous
  Country: US (occurrence: US)
  Receive Date: 20140228
  Receipt Date: 20140228
  Transmission Date: 20141002
  Serious: No
  Sender: FDA-Public Use
  Company Number: US-AMGEN-USASP2014001003

PATIENT
  Age: 64 Year
  Sex: Female
  Weight: 82.99 kg

DRUGS (13)
  1. ENBREL [Suspect]
     Indication: PRODUCT USED FOR UNKNOWN INDICATION
     Dosage: 25 MG, TWICE A WEEK
     Route: 058
  2. XARELTO [Suspect]
     Indication: PRODUCT USED FOR UNKNOWN INDICATION
     Dosage: 10 MG, UNK
     Route: 065
  3. PLAQUENIL                          /00072602/ [Concomitant]
     Dosage: 200 MG, UNK
     Route: 065
  4. LIPITOR [Concomitant]
     Dosage: 40 MG, UNK
  5. TEKTURNA [Concomitant]
     Dosage: 150 MG, UNK
  6. EXFORGE [Concomitant]
     Dosage: 10-320 MG
  7. OMEPRAZOLE [Concomitant]
     Dosage: 20 MG, UNK
  8. IMURAN                             /00001501/ [Concomitant]
     Dosage: 50 MG, UNK
  9. TOPROL [Concomitant]
     Dosage: TOPROL XL 25 MG, UNK
  10. B COMPLEX                          /06817001/ [Concomitant]
     Dosage: UNK
  11. VITAMIN D                          /00107901/ [Concomitant]
     Dosage: 2000 UNIT, UNK
  12. FOLIC ACID [Concomitant]
     Dosage: 20 MG, UNK
  13. LEVOTHYROXIN [Concomitant]
     Dosage: 200 MCG, UNK

REACTIONS (1)
  - Injection site bruising [Unknown]
